FAERS Safety Report 4292364-7 (Version None)
Quarter: 2004Q1

REPORT INFORMATION
  Report Type: 
  Country: None (occurrence: None)
  Receive Date: 20040126
  Receipt Date: 20031003
  Transmission Date: 20041129
  Serious: No
  Sender: FDA-Public Use
  Company Number: USA030843040

PATIENT
  Age: 78 Year
  Sex: Female
  Weight: 47 kg

DRUGS (4)
  1. FORTEO [Suspect]
     Indication: OSTEOPOROSIS
     Dosage: 20 UG/DAY
     Dates: start: 20030701
  2. BENADRYL [Concomitant]
  3. VAGIFEM [Concomitant]
  4. TYLENOL [Concomitant]

REACTIONS (6)
  - BONE DISORDER [None]
  - DRY MOUTH [None]
  - FAECES DISCOLOURED [None]
  - FEELING ABNORMAL [None]
  - INJECTION SITE HAEMORRHAGE [None]
  - INSOMNIA [None]
